FAERS Safety Report 25307347 (Version 3)
Quarter: 2025Q2

REPORT INFORMATION
  Report Type: Spontaneous
  Country: BR (occurrence: BR)
  Receive Date: 20250513
  Receipt Date: 20250624
  Transmission Date: 20250716
  Serious: Yes (Hospitalization)
  Sender: SAREPTA THERAPEUTICS
  Company Number: BR-SAREPTA THERAPEUTICS INC.-SRP2025-005996

PATIENT

DRUGS (1)
  1. ELEVIDYS [Suspect]
     Active Substance: DELANDISTROGENE MOXEPARVOVEC-ROKL
     Indication: Product used for unknown indication
     Route: 065
     Dates: start: 20250430, end: 20250430

REACTIONS (7)
  - Abdominal pain [Recovering/Resolving]
  - Nausea [Unknown]
  - Muscle enzyme increased [Recovering/Resolving]
  - Decreased appetite [Unknown]
  - C-reactive protein increased [Unknown]
  - Pyrexia [Recovered/Resolved]
  - Vomiting [Unknown]

NARRATIVE: CASE EVENT DATE: 20250501
